FAERS Safety Report 4518302-7 (Version None)
Quarter: 2004Q4

REPORT INFORMATION
  Report Type: 
  Country: None (occurrence: None)
  Receive Date: 20041202
  Receipt Date: 20041119
  Transmission Date: 20050328
  Serious: Yes (Other)
  Sender: FDA-Public Use
  Company Number: QUIN - 296

PATIENT
  Age: 94 Year
  Sex: Female

DRUGS (3)
  1. PRUDOXIN [Suspect]
     Dosage: 1 APPLICATION QID TP
     Route: 061
     Dates: start: 20041117, end: 20041117
  2. CLARITIN [Concomitant]
  3. BENADRYL [Concomitant]

REACTIONS (2)
  - LOSS OF CONSCIOUSNESS [None]
  - UNRESPONSIVE TO PAIN STIMULI [None]
